FAERS Safety Report 5321275-0 (Version None)
Quarter: 2007Q2

REPORT INFORMATION
  Report Type: 
  Country: None (occurrence: None)
  Receive Date: 20070504
  Receipt Date: 20070420
  Transmission Date: 20071010
  Serious: Yes (Hospitalization, Other)
  Sender: FDA-Public Use
  Company Number: SPI200700209

PATIENT
  Age: 72 Year
  Sex: Female
  Weight: 91.6 kg

DRUGS (11)
  1. AMITIZA [Suspect]
     Indication: CONSTIPATION
     Dosage: SEE IMAGE
     Route: 048
     Dates: start: 20061201, end: 20070324
  2. AMITIZA [Suspect]
     Indication: CONSTIPATION
     Dosage: SEE IMAGE
     Route: 048
     Dates: start: 20070325, end: 20070401
  3. METFORMIN HCL [Concomitant]
  4. ATROVENT (IPRATROPIUM BROMIDE) INHALER [Concomitant]
  5. FLOVENT (FLUTICASONE PROPIONATE) INHALER [Concomitant]
  6. MULTIVITAMIN /00831701/ (VITAMINS NOS) [Concomitant]
  7. EYE CAPSULES [Concomitant]
  8. LUTEIN (XANTOFYL) [Concomitant]
  9. CRESTOR /01588601/ (ROSUVASTATIN) [Concomitant]
  10. SINGULAIR /01362601/ (MONTELUKAST) [Concomitant]
  11. ARTHROTEC /01182401/ (DICLOFENAC SODIUM, MISOPROSTOL) [Concomitant]

REACTIONS (15)
  - AMNESIA [None]
  - ARRHYTHMIA [None]
  - ASTHENIA [None]
  - DIARRHOEA [None]
  - ERYTHEMA [None]
  - FALL [None]
  - FEELING ABNORMAL [None]
  - FOAMING AT MOUTH [None]
  - HYPOTENSION [None]
  - LOSS OF CONSCIOUSNESS [None]
  - PALLOR [None]
  - SYNCOPE VASOVAGAL [None]
  - TREMOR [None]
  - UNDERDOSE [None]
  - WEIGHT DECREASED [None]
